FAERS Safety Report 6458639-8 (Version None)
Quarter: 2009Q4

REPORT INFORMATION
  Report Type: 
  Country: None (occurrence: None)
  Receive Date: 20091127
  Receipt Date: 20091118
  Transmission Date: 20100525
  Serious: Yes (Hospitalization)
  Sender: FDA-Public Use
  Company Number: FR-RANBAXY-2009RR-28795

PATIENT
  Age: 46 Year
  Sex: Male

DRUGS (4)
  1. IBUPROFEN [Suspect]
     Indication: OROPHARYNGEAL DISCOMFORT
     Dosage: 400 MG, UNK
     Dates: start: 20080708, end: 20080709
  2. IBUPROFEN [Suspect]
     Indication: MUSCULOSKELETAL STIFFNESS
  3. IBUPROFEN [Suspect]
     Indication: CHILLS
  4. CELLCEPT [Concomitant]
     Indication: MULTIPLE SCLEROSIS
     Dosage: 2 G, UNK

REACTIONS (1)
  - AGRANULOCYTOSIS [None]
